FAERS Safety Report 9702012 (Version 1)
Quarter: 2013Q4

REPORT INFORMATION
  Report Type: Spontaneous
  Country: US (occurrence: US)
  Receive Date: 20131121
  Receipt Date: 20131121
  Transmission Date: 20140711
  Serious: Yes (Hospitalization)
  Sender: FDA-Public Use
  Company Number: US-WATSON-2013-20801

PATIENT
  Age: 14 Month
  Sex: Female

DRUGS (1)
  1. LORAZEPAM (WATSON LABORATORIES) [Suspect]
     Indication: PRODUCT USED FOR UNKNOWN INDICATION
     Dosage: UNK, UNKNOWN
     Route: 048
     Dates: start: 20130805, end: 20130805

REACTIONS (4)
  - Accidental exposure to product by child [Unknown]
  - Fatigue [Unknown]
  - Balance disorder [Unknown]
  - Agitation [Unknown]
